FAERS Safety Report 16120625 (Version 1)
Quarter: 2019Q1

REPORT INFORMATION
  Report Type: Spontaneous
  Country: HU (occurrence: HU)
  Receive Date: 20190327
  Receipt Date: 20190327
  Transmission Date: 20190418
  Serious: Yes (Other)
  Sender: FDA-Public Use
  Company Number: HU-AMGEN-HUNSP2019040104

PATIENT
  Age: 40 Year

DRUGS (35)
  1. VECTIBIX [Suspect]
     Active Substance: PANITUMUMAB
     Indication: TONGUE NEOPLASM MALIGNANT STAGE UNSPECIFIED
     Dosage: 300 MILLIGRAM, Q2WK
     Route: 042
     Dates: start: 20190102, end: 201901
  2. IRINOTECAN [Suspect]
     Active Substance: IRINOTECAN
     Indication: GALLBLADDER CANCER
     Dosage: 330 MILLIGRAM, Q2WK
     Route: 042
     Dates: start: 20190123
  3. IRINOTECAN [Suspect]
     Active Substance: IRINOTECAN
     Indication: COLON CANCER METASTATIC
  4. CALCIMUSC [Concomitant]
     Active Substance: CALCIUM GLUCONATE
     Dosage: UNK
     Route: 042
  5. VECTIBIX [Suspect]
     Active Substance: PANITUMUMAB
     Indication: METASTASES TO LIVER
  6. CALCIUM FOLINATE [Suspect]
     Active Substance: LEUCOVORIN CALCIUM
     Indication: COLON CANCER METASTATIC
  7. OXALIPLATIN. [Concomitant]
     Active Substance: OXALIPLATIN
     Indication: COLON CANCER METASTATIC
  8. SUPRASTIN [Concomitant]
     Active Substance: CHLOROPYRAMINE HYDROCHLORIDE
     Dosage: UNK
  9. VITAMIN C [Concomitant]
     Active Substance: ASCORBIC ACID
     Dosage: UNK
  10. 5-FU [FLUOROURACIL] [Concomitant]
     Active Substance: FLUOROURACIL
     Indication: GALLBLADDER CANCER
     Dosage: 3800 MILLIGRAM (THROUGH AN INFUSION PUMP OVER 48 HOURS)
     Route: 041
  11. FOLINIC ACID [Concomitant]
     Active Substance: LEUCOVORIN
     Indication: TONGUE NEOPLASM MALIGNANT STAGE UNSPECIFIED
     Dosage: UNK
     Dates: start: 20170517
  12. OXALIPLATIN. [Concomitant]
     Active Substance: OXALIPLATIN
     Indication: TONGUE NEOPLASM MALIGNANT STAGE UNSPECIFIED
     Dosage: UNK
     Dates: start: 20170517, end: 20180328
  13. DOXYCYCLINE. [Concomitant]
     Active Substance: DOXYCYCLINE
     Indication: DERMATITIS ACNEIFORM
     Dosage: 100 MILLIGRAM, QD
     Route: 048
  14. 5-FU [FLUOROURACIL] [Concomitant]
     Active Substance: FLUOROURACIL
     Indication: COLON CANCER METASTATIC
  15. BEVACIZUMAB. [Concomitant]
     Active Substance: BEVACIZUMAB
     Indication: GALLBLADDER CANCER
  16. CLARINEX [Concomitant]
     Active Substance: DESLORATADINE
     Indication: HYPERSENSITIVITY
     Dosage: 5 MILLIGRAM, QD
     Route: 048
  17. VECTIBIX [Suspect]
     Active Substance: PANITUMUMAB
     Indication: GALLBLADDER CANCER
     Dosage: 300 MILLIGRAM, Q2WK
     Route: 042
     Dates: start: 20190123
  18. CALCIUM FOLINATE [Suspect]
     Active Substance: LEUCOVORIN CALCIUM
     Indication: COLON CANCER METASTATIC
     Dosage: 640 MILLIGRAM, QWK
     Route: 042
  19. IRINOTECAN [Suspect]
     Active Substance: IRINOTECAN
     Indication: TONGUE NEOPLASM MALIGNANT STAGE UNSPECIFIED
     Dosage: 330 MILLIGRAM, Q2WK
     Route: 042
     Dates: start: 20190102, end: 201901
  20. OXALIPLATIN. [Concomitant]
     Active Substance: OXALIPLATIN
     Indication: GALLBLADDER CANCER
  21. 5-FU [FLUOROURACIL] [Concomitant]
     Active Substance: FLUOROURACIL
     Indication: TONGUE NEOPLASM MALIGNANT STAGE UNSPECIFIED
     Dosage: 990 MILLIGRAM (THROUGH AN INFUSION PUMP OVER 48 HOURS)
     Route: 040
     Dates: start: 20170517
  22. FOLINIC ACID [Concomitant]
     Active Substance: LEUCOVORIN
     Indication: GALLBLADDER CANCER
  23. FOLINIC ACID [Concomitant]
     Active Substance: LEUCOVORIN
     Indication: METASTASES TO LIVER
  24. BEVACIZUMAB. [Concomitant]
     Active Substance: BEVACIZUMAB
     Indication: TONGUE NEOPLASM MALIGNANT STAGE UNSPECIFIED
  25. VITAMIN D3 [Concomitant]
     Active Substance: CHOLECALCIFEROL
     Indication: PROPHYLAXIS
     Dosage: 3000 INTERNATIONAL UNIT
     Route: 048
  26. VECTIBIX [Suspect]
     Active Substance: PANITUMUMAB
     Indication: COLON CANCER METASTATIC
     Dosage: 300 MILLIGRAM, Q2WK
     Route: 042
     Dates: start: 20170517, end: 20180328
  27. CALCIUM FOLINATE [Suspect]
     Active Substance: LEUCOVORIN CALCIUM
     Indication: METASTASES TO LIVER
  28. IRINOTECAN [Suspect]
     Active Substance: IRINOTECAN
     Indication: METASTASES TO LIVER
  29. 5-FU [FLUOROURACIL] [Concomitant]
     Active Substance: FLUOROURACIL
     Indication: METASTASES TO LIVER
  30. BEVACIZUMAB. [Concomitant]
     Active Substance: BEVACIZUMAB
     Indication: COLON CANCER METASTATIC
     Dosage: UNK
  31. FOLINIC ACID [Concomitant]
     Active Substance: LEUCOVORIN
     Indication: COLON CANCER METASTATIC
  32. BEVACIZUMAB. [Concomitant]
     Active Substance: BEVACIZUMAB
     Indication: METASTASES TO LIVER
  33. OXALIPLATIN. [Concomitant]
     Active Substance: OXALIPLATIN
     Indication: METASTASES TO LIVER
  34. SOLU-MEDROL [Concomitant]
     Active Substance: METHYLPREDNISOLONE SODIUM SUCCINATE
     Dosage: 125 MILLIGRAM
     Route: 042
  35. ONDANSETRON [Concomitant]
     Active Substance: ONDANSETRON
     Dosage: 8 MILLIGRAM
     Route: 042

REACTIONS (8)
  - Erythema [Unknown]
  - Dry skin [Unknown]
  - Neuropathy peripheral [Unknown]
  - Off label use [Unknown]
  - Thrombocytopenia [Recovered/Resolved]
  - Metastases to liver [Not Recovered/Not Resolved]
  - Dermatitis acneiform [Unknown]
  - Mucosal inflammation [Recovering/Resolving]
